FAERS Safety Report 18387600 (Version 3)
Quarter: 2022Q2

REPORT INFORMATION
  Report Type: Spontaneous
  Country: US (occurrence: US)
  Receive Date: 20201015
  Receipt Date: 20220513
  Transmission Date: 20220721
  Serious: No
  Sender: FDA-Public Use
  Company Number: US-PFIZER INC-2020399526

PATIENT
  Age: 40 Year
  Sex: Female

DRUGS (1)
  1. XELJANZ [Suspect]
     Active Substance: TOFACITINIB CITRATE
     Indication: Psoriatic arthropathy
     Dosage: 5 MG, 2X/DAY (TAKE 1 (5 MG) TABLET BY MOUTH TWICE A DAY)
     Route: 048
     Dates: start: 20200420

REACTIONS (4)
  - Illness [Unknown]
  - Nasal congestion [Unknown]
  - Nasopharyngitis [Unknown]
  - COVID-19 [Unknown]

NARRATIVE: CASE EVENT DATE: 20201001
